FAERS Safety Report 10018369 (Version 3)
Quarter: 2014Q2

REPORT INFORMATION
  Report Type: Spontaneous
  Country: US (occurrence: US)
  Receive Date: 20140318
  Receipt Date: 20140418
  Transmission Date: 20141212
  Serious: Yes (Death, Other)
  Sender: FDA-Public Use
  Company Number: US-PFIZER INC-2014056858

PATIENT
  Age: 68 Year
  Sex: Female

DRUGS (1)
  1. ELLENCE [Suspect]
     Dosage: UNK

REACTIONS (1)
  - Death [Fatal]
